FAERS Safety Report 7967780-X (Version None)
Quarter: 2011Q4

REPORT INFORMATION
  Report Type: 
  Country: None (occurrence: None)
  Receive Date: 20111209
  Receipt Date: 20111202
  Transmission Date: 20120403
  Serious: Yes (Other)
  Sender: FDA-Public Use
  Company Number: US-BAYER-2011-116263

PATIENT

DRUGS (1)
  1. BETASERON [Suspect]

REACTIONS (1)
  - VENOUS THROMBOSIS [None]
